FAERS Safety Report 15116472 (Version 2)
Quarter: 2018Q3

REPORT INFORMATION
  Report Type: Spontaneous
  Country: JP (occurrence: JP)
  Receive Date: 20180706
  Receipt Date: 20180831
  Transmission Date: 20181010
  Serious: Yes (Life-Threatening)
  Sender: FDA-Public Use
  Company Number: JP-PFIZER INC-2018269004

PATIENT
  Age: 72 Year
  Sex: Male
  Weight: 57.1 kg

DRUGS (10)
  1. CARBOPLATIN. [Suspect]
     Active Substance: CARBOPLATIN
     Indication: LUNG NEOPLASM MALIGNANT
     Dosage: CYCLIC (6 ADMINISTRATIONS AT 150 MG/BODY ONCE WEEKLY)
     Route: 041
     Dates: start: 20140224, end: 20140407
  2. CALSED [Suspect]
     Active Substance: AMRUBICIN HYDROCHLORIDE
     Dosage: CYCLIC (THEN 60 MG/BODY FOR 3 CONSECUTIVE DAYS ONCE EVERY 3 WEEKS)
     Route: 041
     Dates: end: 20150806
  3. CALSED [Suspect]
     Active Substance: AMRUBICIN HYDROCHLORIDE
     Indication: LUNG NEOPLASM MALIGNANT
     Dosage: CYCLIC (4 ADMINISTRATIONS AT 70 MG/BODY)
     Route: 041
     Dates: start: 20150602
  4. UFT [Suspect]
     Active Substance: TEGAFUR\URACIL
     Indication: LUNG NEOPLASM MALIGNANT
     Dosage: 600 MG/BODY
     Dates: start: 20151028
  5. TAXOTERE [Suspect]
     Active Substance: DOCETAXEL
     Indication: LUNG NEOPLASM MALIGNANT
     Dosage: SINGLE DOSE OF 80 MG/BODY
     Dates: start: 20160217, end: 20160217
  6. CARBOPLATIN. [Suspect]
     Active Substance: CARBOPLATIN
     Dosage: CYCLIC (2 ADMINISTRATIONS AT 450 MG/BODY ONCE EVERY 4 WEEKS)
     Route: 041
     Dates: start: 20140417, end: 20140529
  7. PACLITAXEL 30MG/5ML HOSPIRA [Suspect]
     Active Substance: PACLITAXEL
     Indication: LUNG NEOPLASM MALIGNANT
     Dosage: CYCLIC (6 ADMINISTRATIONS AT 60 MG/BODY ONCE WEEKLY)
     Route: 041
     Dates: start: 20140224, end: 20140407
  8. PACLITAXEL 30MG/5ML HOSPIRA [Suspect]
     Active Substance: PACLITAXEL
     Dosage: CYCLIC (5 ADMINISTRATIONS AT 100 MG/BODY ONCE WEEKLY)
     Route: 041
     Dates: start: 20140417, end: 20140529
  9. UFT [Suspect]
     Active Substance: TEGAFUR\URACIL
     Dosage: THEN 500 MG/BODY DAILY
     Dates: end: 20160203
  10. OPDIVO [Suspect]
     Active Substance: NIVOLUMAB
     Indication: LUNG NEOPLASM MALIGNANT
     Dosage: CYCLIC (53 ADMINISTRATIONS AT 180 MG/BODY EVERY OTHER WEEK)
     Route: 041
     Dates: start: 20160517, end: 20180516

REACTIONS (3)
  - Second primary malignancy [Unknown]
  - Myelodysplastic syndrome [Unknown]
  - Neoplasm recurrence [Unknown]

NARRATIVE: CASE EVENT DATE: 20150513
